FAERS Safety Report 5002562-2 (Version None)
Quarter: 2006Q2

REPORT INFORMATION
  Report Type: 
  Country: None (occurrence: None)
  Receive Date: 20060515
  Receipt Date: 20060307
  Transmission Date: 20061013
  Serious: Yes (Hospitalization, Disabling)
  Sender: FDA-Public Use
  Company Number: US-MERCK-0603USA01342

PATIENT
  Age: 64 Year
  Sex: Female
  Weight: 69 kg

DRUGS (11)
  1. VIOXX [Suspect]
     Indication: ARTHRITIS
     Route: 048
     Dates: start: 20000201, end: 20040901
  2. PLAVIX [Concomitant]
     Route: 065
  3. ZETIA [Concomitant]
     Route: 065
  4. ISOSORBIDE MONONITRATE ER [Concomitant]
     Route: 065
  5. DIOVAN [Concomitant]
     Route: 065
  6. DISOPYRAMIDE [Concomitant]
     Route: 065
  7. TERAZOL 7 [Concomitant]
     Route: 065
  8. ZOCOR [Concomitant]
     Route: 065
  9. NORPACE [Concomitant]
     Route: 065
  10. LIPITOR [Concomitant]
     Route: 065
  11. SPIRONOLACTONE [Concomitant]
     Route: 065

REACTIONS (1)
  - CEREBROVASCULAR ACCIDENT [None]
